FAERS Safety Report 10567029 (Version 2)
Quarter: 2014Q4

REPORT INFORMATION
  Report Type: Spontaneous
  Country: BR (occurrence: BR)
  Receive Date: 20141105
  Receipt Date: 20141105
  Transmission Date: 20150529
  Serious: Yes (Other)
  Sender: FDA-Public Use
  Company Number: BR-ASTRAZENECA-2008UW07307

PATIENT
  Age: 55 Year
  Sex: Female
  Weight: 77 kg

DRUGS (1)
  1. ARIMIDEX [Suspect]
     Active Substance: ANASTROZOLE
     Indication: BREAST CANCER
     Dosage: DAILY
     Route: 048
     Dates: start: 200501, end: 2010

REACTIONS (5)
  - Varicose vein [Not Recovered/Not Resolved]
  - Vulvovaginal dryness [Not Recovered/Not Resolved]
  - Libido decreased [Not Recovered/Not Resolved]
  - Arthralgia [Recovered/Resolved]
  - Metastases to bone [Unknown]

NARRATIVE: CASE EVENT DATE: 2005
